FAERS Safety Report 6829229-X (Version None)
Quarter: 2010Q3

REPORT INFORMATION
  Report Type: 
  Country: None (occurrence: None)
  Receive Date: 20100709
  Receipt Date: 20070308
  Transmission Date: 20110219
  Serious: No
  Sender: FDA-Public Use
  Company Number: US-PFIZER INC-2007019932

PATIENT
  Sex: Female
  Weight: 79.38 kg

DRUGS (8)
  1. CHANTIX [Suspect]
     Indication: SMOKING CESSATION THERAPY
     Dates: start: 20060101, end: 20060101
  2. PROZAC [Concomitant]
  3. WELLBUTRIN [Concomitant]
  4. CARBIDOPA [Concomitant]
  5. AMITRIPTYLINE [Concomitant]
  6. CELEBREX [Concomitant]
  7. PREVACID [Concomitant]
  8. BISOPROLOL [Concomitant]

REACTIONS (1)
  - DRUG INEFFECTIVE [None]
